FAERS Safety Report 8613698-9 (Version None)
Quarter: 2012Q3

REPORT INFORMATION
  Report Type: 
  Country: None (occurrence: None)
  Receive Date: 20120823
  Receipt Date: 20120814
  Transmission Date: 20120928
  Serious: Yes (Other)
  Sender: FDA-Public Use
  Company Number: US-BIOGENIDEC-2012BI032189

PATIENT
  Sex: Female

DRUGS (3)
  1. TYSABRI [Suspect]
     Route: 042
     Dates: start: 20080319, end: 20091104
  2. TYSABRI [Suspect]
     Indication: MULTIPLE SCLEROSIS
     Route: 042
     Dates: start: 20050124
  3. TYSABRI [Suspect]
     Route: 042
     Dates: start: 20110712, end: 20111219

REACTIONS (2)
  - RESPIRATORY FAILURE [None]
  - PNEUMONIA [None]
